FAERS Safety Report 10109230 (Version 1)
Quarter: 2014Q2

REPORT INFORMATION
  Report Type: Spontaneous
  Country: US (occurrence: None)
  Receive Date: 20140424
  Receipt Date: 20140424
  Transmission Date: 20141212
  Serious: Yes (Other)
  Sender: FDA-Public Use
  Company Number: None

PATIENT
  Age: 53 Year
  Sex: Female
  Weight: 52.62 kg

DRUGS (9)
  1. SERTRALINE [Suspect]
     Indication: ANXIETY
     Route: 048
     Dates: start: 20140314, end: 20140414
  2. SERTRALINE [Suspect]
     Indication: DEPRESSION
     Route: 048
     Dates: start: 20140314, end: 20140414
  3. ARMOUR THYROID 90 MG [Concomitant]
  4. PREDNISONE  10 MG [Concomitant]
  5. PAROXETINE ER 25 [Concomitant]
  6. KENALOG 40 MG INJECTION  (AS NEEDED) [Concomitant]
  7. VITAMIN D [Concomitant]
  8. FISH OIL [Concomitant]
  9. B-COMPLEX [Concomitant]

REACTIONS (13)
  - Lip swelling [None]
  - Dyspnoea [None]
  - Blister [None]
  - Urinary incontinence [None]
  - Hyperhidrosis [None]
  - Anxiety [None]
  - Panic attack [None]
  - Insomnia [None]
  - Dyskinesia [None]
  - Screaming [None]
  - Contusion [None]
  - Arthralgia [None]
  - Drug hypersensitivity [None]
